FAERS Safety Report 7426870-0 (Version None)
Quarter: 2011Q2

REPORT INFORMATION
  Report Type: 
  Country: None (occurrence: None)
  Receive Date: 20110415
  Receipt Date: 20110415
  Transmission Date: 20111010
  Serious: Yes (Hospitalization)
  Sender: FDA-Public Use
  Company Number: None

PATIENT
  Age: 41 Year
  Sex: Male
  Weight: 106.4 kg

DRUGS (1)
  1. OLANZAPINE [Suspect]
     Dosage: 30 MG AT BEDTIME PO
     Route: 048
     Dates: start: 20100311

REACTIONS (5)
  - PENILE PAIN [None]
  - FUNGAL INFECTION [None]
  - HYPERGLYCAEMIA [None]
  - URINARY TRACT INFECTION [None]
  - PENILE SWELLING [None]
